FAERS Safety Report 4384668-4 (Version None)
Quarter: 2004Q2

REPORT INFORMATION
  Report Type: 
  Country: None (occurrence: None)
  Receive Date: 20040621
  Receipt Date: 20040614
  Transmission Date: 20050107
  Serious: Yes (Hospitalization)
  Sender: FDA-Public Use
  Company Number: 2004CG01141

PATIENT
  Age: 69 Year
  Sex: Female
  Weight: 69 kg

DRUGS (3)
  1. TENORMIN [Suspect]
     Indication: ESSENTIAL HYPERTENSION
     Dates: end: 20040304
  2. ZESTORETIC [Suspect]
     Indication: ESSENTIAL HYPERTENSION
     Dosage: 20 + 12.5 MG
     Dates: end: 20040304
  3. PHYSIOTENS ^GIULINI^ [Suspect]
     Indication: ESSENTIAL HYPERTENSION
     Dates: end: 20040304

REACTIONS (8)
  - ATRIOVENTRICULAR BLOCK FIRST DEGREE [None]
  - BLOOD PRESSURE INCREASED [None]
  - DRUG INTERACTION [None]
  - FALL [None]
  - MALAISE [None]
  - ORTHOSTATIC HYPOTENSION [None]
  - PSYCHOMOTOR SKILLS IMPAIRED [None]
  - PULSE ABSENT [None]
